FAERS Safety Report 8999203 (Version 2)
Quarter: 2013Q1

REPORT INFORMATION
  Report Type: Spontaneous
  Country: US (occurrence: US)
  Receive Date: 20130103
  Receipt Date: 20130204
  Transmission Date: 20140127
  Serious: Yes (Other)
  Sender: FDA-Public Use
  Company Number: US-ELI_LILLY_AND_COMPANY-US201212007787

PATIENT
  Age: 56 Year
  Sex: Female
  Weight: 107.94 kg

DRUGS (5)
  1. CYMBALTA [Suspect]
     Indication: NEUROPATHY PERIPHERAL
     Dosage: 30 MG, QD
     Route: 048
     Dates: start: 20121220, end: 20121220
  2. BENICAR HCT [Concomitant]
  3. PLENDIL [Concomitant]
  4. MESTINON [Concomitant]
  5. OMEPRAZOLE [Concomitant]

REACTIONS (18)
  - Cerebrovascular accident [Recovering/Resolving]
  - Morbid thoughts [Recovering/Resolving]
  - Anxiety [Recovering/Resolving]
  - Feeling jittery [Recovering/Resolving]
  - Psychomotor hyperactivity [Recovering/Resolving]
  - Logorrhoea [Recovering/Resolving]
  - Feeling abnormal [Recovering/Resolving]
  - Initial insomnia [Recovering/Resolving]
  - Palpitations [Recovering/Resolving]
  - Feeling cold [Recovering/Resolving]
  - Chills [Recovering/Resolving]
  - Pyrexia [Recovering/Resolving]
  - Headache [Recovering/Resolving]
  - Nausea [Recovering/Resolving]
  - Vision blurred [Recovering/Resolving]
  - Pupil fixed [Recovering/Resolving]
  - Tremor [Recovering/Resolving]
  - Balance disorder [Recovering/Resolving]
